FAERS Safety Report 24062828 (Version 2)
Quarter: 2024Q4

REPORT INFORMATION
  Report Type: Spontaneous
  Country: IE (occurrence: IE)
  Receive Date: 20240709
  Receipt Date: 20241224
  Transmission Date: 20250115
  Serious: Yes (Other)
  Sender: CHATTEM
  Company Number: IE-SA-2019SA038853

PATIENT
  Sex: Female
  Weight: 1.5 kg

DRUGS (18)
  1. OMEPRAZOLE [Suspect]
     Active Substance: OMEPRAZOLE
     Indication: Foetal exposure during pregnancy
     Dosage: DOSE DESCRIPTION : MATERNAL DOSE: 20 MG DAILY
     Route: 064
  2. ACETAMINOPHEN [Suspect]
     Active Substance: ACETAMINOPHEN
     Indication: Foetal exposure during pregnancy
     Dosage: DOSE DESCRIPTION : UNK?PARENT ROUTE OF ADMIN: RECTAL
     Route: 064
  3. RANITIDINE [Suspect]
     Active Substance: RANITIDINE
     Indication: Foetal exposure during pregnancy
     Dosage: DOSE DESCRIPTION : MATERNAL DOSE: 150 MG?PARENT ROUTE OF ADMIN: ORAL
     Route: 064
  4. LIDOCAINE [Suspect]
     Active Substance: LIDOCAINE
     Indication: Foetal exposure during pregnancy
     Route: 064
  5. DICLOFENAC SODIUM [Suspect]
     Active Substance: DICLOFENAC SODIUM
     Indication: Foetal exposure during pregnancy
     Dosage: DOSE DESCRIPTION : UNK?PARENT ROUTE OF ADMIN: RECTAL
     Route: 064
  6. OXYGEN [Suspect]
     Active Substance: OXYGEN
     Indication: Foetal exposure during pregnancy
     Dosage: DOSE DESCRIPTION : MATERNAL DOSE: 50 L/MIN?PARENT ROUTE OF ADMIN: NASAL
     Route: 064
  7. OXYGEN [Suspect]
     Active Substance: OXYGEN
     Dosage: DOSE DESCRIPTION : MATERNAL DOSE: 15 L/MIN
     Route: 064
  8. PROPOFOL [Suspect]
     Active Substance: PROPOFOL
     Indication: Foetal exposure during pregnancy
     Dosage: MATERNAL DOSE: 4-6 UG/ML?PARENT ROUTE OF ADMIN: INTRAVENOUS BOLUS
     Route: 064
  9. PROPOFOL [Suspect]
     Active Substance: PROPOFOL
     Dosage: MATERNAL DOSE: 180 MG?PARENT ROUTE OF ADMIN: INTRAVENOUS BOLUS
     Route: 064
  10. ALPRAZOLAM [Suspect]
     Active Substance: ALPRAZOLAM
     Indication: Foetal exposure during pregnancy
     Dosage: DOSE DESCRIPTION : 250 UG TWICE DAILY
     Route: 064
  11. DEXMEDETOMIDINE [Suspect]
     Active Substance: DEXMEDETOMIDINE
     Indication: Analgesic therapy
     Dosage: DOSE DESCRIPTION : MATERNAL DOSE: 0.8 UG/KG OVER 10 MINUTES?PARENT ROUTE OF ADMIN: INTRAVENOUS BOLUS
     Route: 064
  12. DEXMEDETOMIDINE [Suspect]
     Active Substance: DEXMEDETOMIDINE
     Indication: Anxiolytic therapy
     Dosage: WEANED BUT MAINTAINED?PARENT ROUTE OF ADMIN: INTRAVENOUS BOLUS
     Route: 064
  13. DEXMEDETOMIDINE [Suspect]
     Active Substance: DEXMEDETOMIDINE
     Indication: Sedation
     Dosage: CONTINUED?PARENT ROUTE OF ADMIN: INTRAVENOUS BOLUS
     Route: 064
  14. DEXMEDETOMIDINE [Suspect]
     Active Substance: DEXMEDETOMIDINE
     Dosage: 0.8-1.0 MCG/KG?PARENT ROUTE OF ADMIN: INTRAVENOUS BOLUS
     Route: 064
  15. LEVOBUPIVACAINE [Suspect]
     Active Substance: LEVOBUPIVACAINE
     Indication: Foetal exposure during pregnancy
     Dosage: DOSE DESCRIPTION : MATERNAL DOSE: 30 ML
     Route: 064
  16. EPINEPHRINE [Suspect]
     Active Substance: EPINEPHRINE
     Indication: Foetal exposure during pregnancy
     Dosage: DOSE DESCRIPTION : MATERNAL DOSE: 15 ML
     Route: 064
  17. SODIUM CITRATE [Suspect]
     Active Substance: SODIUM CITRATE
     Indication: Foetal exposure during pregnancy
     Dosage: DOSE DESCRIPTION : MATERNAL DOSE: 30 ML
     Route: 064
  18. ROCURONIUM [Suspect]
     Active Substance: ROCURONIUM BROMIDE
     Indication: Foetal exposure during pregnancy
     Dosage: DOSE DESCRIPTION : MATERNAL DOSE: 1 MG/KG
     Route: 064

REACTIONS (4)
  - Low birth weight baby [Unknown]
  - Premature baby [Unknown]
  - Apgar score low [Unknown]
  - Foetal exposure during pregnancy [Unknown]
